FAERS Safety Report 24730428 (Version 1)
Quarter: 2024Q4

REPORT INFORMATION
  Report Type: Spontaneous
  Country: FR (occurrence: FR)
  Receive Date: 20241213
  Receipt Date: 20241213
  Transmission Date: 20250115
  Serious: Yes (Hospitalization)
  Sender: SANDOZ
  Company Number: FR-ROCHE-10000064538

PATIENT
  Age: 70 Year
  Sex: Female
  Weight: 56.8 kg

DRUGS (18)
  1. ADRIACIN [Suspect]
     Active Substance: DOXORUBICIN HYDROCHLORIDE
     Indication: Diffuse large B-cell lymphoma
     Dosage: START DATE OF MOST RECENT DOSE OF STUDY DRUG PRIOR TO AE/SAE 07-AUG-2024DOSE LAST STUDY DRUG ADMIN P
     Route: 042
     Dates: start: 20240718
  2. CYCLOPHOSPHAMIDE [Suspect]
     Active Substance: CYCLOPHOSPHAMIDE
     Indication: Diffuse large B-cell lymphoma
     Dosage: START DATE OF MOST RECENT DOSE OF STUDY DRUG PRIOR TO AE/SAE  07-AUG-2024DOSE LAST STUDY DRUG ADMIN
     Route: 042
     Dates: start: 20240718
  3. GLOFITAMAB [Suspect]
     Active Substance: GLOFITAMAB
     Indication: Diffuse large B-cell lymphoma
     Dosage: DOSE LAST STUDY DRUG ADMIN PRIOR AE/SAE 2.50 MGSTART DATE OF MOST RECENT DOSE OF STUDY DRUGPRIOR TO
     Route: 042
     Dates: start: 20240814
  4. GLOFITAMAB [Suspect]
     Active Substance: GLOFITAMAB
     Dosage: UNK
     Route: 042
  5. PREDNISONE [Suspect]
     Active Substance: PREDNISONE
     Indication: Diffuse large B-cell lymphoma
     Dosage: DOSE LAST STUDY DRUG ADMIN PRIOR AE/SAE 100 MGSTART + END DATE OF MOST RECENT DOSE OF STUDY DRUG PRI
     Route: 048
     Dates: start: 20240717
  6. DEXAMETHASONE [Concomitant]
     Active Substance: DEXAMETHASONE
     Indication: Product used for unknown indication
     Dosage: 20.000MG QD
     Route: 042
     Dates: start: 20240814, end: 20240814
  7. LORATADINE [Concomitant]
     Active Substance: LORATADINE
     Indication: Product used for unknown indication
     Dosage: 10.000MG QD
     Route: 048
     Dates: start: 20240807, end: 20240807
  8. LORATADINE [Concomitant]
     Active Substance: LORATADINE
     Dosage: 10.000MG QD
     Route: 048
     Dates: start: 20240717, end: 20240717
  9. LORATADINE [Concomitant]
     Active Substance: LORATADINE
     Dosage: 10.000MG QD
     Route: 048
     Dates: start: 20240814, end: 20240814
  10. ONDANSETRON [Concomitant]
     Active Substance: ONDANSETRON
     Indication: Product used for unknown indication
     Dosage: 16.000MG QD
     Route: 042
     Dates: start: 20240807, end: 20240807
  11. ONDANSETRON [Concomitant]
     Active Substance: ONDANSETRON
     Dosage: 16.000MG QD
     Route: 042
     Dates: start: 20240717, end: 20240717
  12. ACETAMINOPHEN [Concomitant]
     Active Substance: ACETAMINOPHEN
     Indication: Product used for unknown indication
     Dosage: 1000.000MG QD
     Route: 048
     Dates: start: 20240807, end: 20240807
  13. ACETAMINOPHEN [Concomitant]
     Active Substance: ACETAMINOPHEN
     Dosage: 1000.000MG QD
     Route: 048
     Dates: start: 20240717, end: 20240717
  14. ACETAMINOPHEN [Concomitant]
     Active Substance: ACETAMINOPHEN
     Dosage: 1000.000MG QD
     Route: 048
     Dates: start: 20240814, end: 20240814
  15. POLATUZUMAB VEDOTIN [Concomitant]
     Active Substance: POLATUZUMAB VEDOTIN
     Indication: Diffuse large B-cell lymphoma
     Dosage: START DATE OF MOST RECENT DOSE OF STUDY DRUG PRIOR TO AE/SAE 07-AUG-2024DOSE LAST STUDY DRUG ADMIN P
     Route: 042
     Dates: start: 20240717
  16. POLATUZUMAB VEDOTIN [Concomitant]
     Active Substance: POLATUZUMAB VEDOTIN
     Dosage: UNK
     Route: 042
  17. RITUXIMAB [Concomitant]
     Active Substance: RITUXIMAB
     Indication: Diffuse large B-cell lymphoma
     Dosage: START DATE OF MOST RECENT DOSE OF STUDY DRUG PRIOR TO AE/SAE 07-AUG-2024DOSE LAST STUDY DRUG ADMIN P
     Route: 042
     Dates: start: 20240717
  18. RITUXIMAB [Concomitant]
     Active Substance: RITUXIMAB
     Dosage: UNK
     Route: 042

REACTIONS (1)
  - Cytokine release syndrome [Recovered/Resolved]

NARRATIVE: CASE EVENT DATE: 20240815
